FAERS Safety Report 9702213 (Version 1)
Quarter: 2013Q4

REPORT INFORMATION
  Report Type: Spontaneous
  Country: US (occurrence: None)
  Receive Date: 20131119
  Receipt Date: 20131119
  Transmission Date: 20140711
  Serious: Yes (Hospitalization)
  Sender: FDA-Public Use
  Company Number: 2010540

PATIENT
  Age: 72 Year
  Sex: 0

DRUGS (3)
  1. VINCRISTINE SULPHATE INJECTION (VINCRISTINE SULFATE) [Suspect]
     Indication: CHRONIC LYMPHOCYTIC LEUKAEMIA
     Dosage: .4 MG MILLIGRAM(S), UNKNOWN, INTRAVENOUS (NOT OTHERWISE SPECIFIED)
     Route: 042
     Dates: start: 20121112
  2. (CYCLOPHOSPHAMIDE) [Suspect]
     Indication: CHRONIC LYMPHOCYTIC LEUKAEMIA
     Dosage: 689 MG MILLIGRAM(S), 1 HOUR, INTRAVENOUS (NOT OTHERWISE SPECIFIED)
     Route: 042
     Dates: start: 20121112
  3. DEXAMETHASONE [Suspect]
     Indication: CHRONIC LYMPHOCYTIC LEUKAEMIA
     Dosage: 40 MG MILLIGRAM(S), UNKNOWN, ORAL
     Route: 048
     Dates: start: 20121112

REACTIONS (6)
  - Exophthalmos [None]
  - Diplopia [None]
  - Visual impairment [None]
  - Sinus disorder [None]
  - Mass [None]
  - Neoplasm malignant [None]
